FAERS Safety Report 8988782 (Version 2)
Quarter: 2013Q4

REPORT INFORMATION
  Report Type: Report from Study
  Country: JP (occurrence: JP)
  Receive Date: 20121228
  Receipt Date: 20131022
  Transmission Date: 20140711
  Serious: Yes (Death, Other)
  Sender: FDA-Public Use
  Company Number: PHHY2009JP09606

PATIENT
  Age: 46 Year
  Sex: Female
  Weight: 47 kg

DRUGS (8)
  1. ICL670A [Suspect]
     Indication: IRON OVERLOAD
     Dosage: 875 MG, DAILY
     Route: 048
     Dates: start: 20080914, end: 20080921
  2. ICL670A [Suspect]
     Indication: ACUTE MYELOID LEUKAEMIA
  3. BLUBATOSINE [Concomitant]
     Dosage: 200 MG, UNK
     Route: 042
     Dates: start: 20080912
  4. MINOPHAGEN C [Concomitant]
     Dosage: 3 DF, UNK
     Route: 042
     Dates: start: 20080911
  5. SOLU-CORTEF [Concomitant]
     Dosage: 200 MG, UNK
     Route: 042
     Dates: start: 20080822
  6. MEROPEN [Concomitant]
     Dosage: 1 G, UNK
     Route: 042
     Dates: start: 20080919
  7. TAKEPRON [Concomitant]
     Dosage: 30 MG, UNK
     Route: 048
     Dates: start: 20080819
  8. NORVASC [Concomitant]
     Dosage: 2.5 MG, UNK
     Route: 048
     Dates: start: 20080907

REACTIONS (9)
  - Cerebral infarction [Fatal]
  - Cerebral artery embolism [Fatal]
  - Hemiplegia [Fatal]
  - Altered state of consciousness [Fatal]
  - General physical health deterioration [Unknown]
  - Sepsis [Unknown]
  - Pyrexia [Unknown]
  - Infection [Unknown]
  - Blood urea increased [Not Recovered/Not Resolved]
